FAERS Safety Report 19593073 (Version 3)
Quarter: 2021Q3

REPORT INFORMATION
  Report Type: Spontaneous
  Country: US (occurrence: US)
  Receive Date: 20210722
  Receipt Date: 20210920
  Transmission Date: 20211014
  Serious: No
  Sender: FDA-Public Use
  Company Number: US-KARYOPHARM-2021KPT000759

PATIENT

DRUGS (20)
  1. NOVOLOG [Concomitant]
     Active Substance: INSULIN ASPART
  2. LISINOPRIL. [Concomitant]
     Active Substance: LISINOPRIL
  3. ASPIRIN (E.C.) [Concomitant]
     Active Substance: ASPIRIN
  4. CALCIUM VITAMIN D [Concomitant]
     Active Substance: CALCIUM\VITAMIN D
  5. COLACE [Concomitant]
     Active Substance: DOCUSATE SODIUM
  6. XPOVIO [Suspect]
     Active Substance: SELINEXOR
     Dosage: 80 MG, WEEKLY
     Route: 048
     Dates: start: 2021
  7. LIORESAL [Concomitant]
     Active Substance: BACLOFEN
  8. XPOVIO [Suspect]
     Active Substance: SELINEXOR
     Indication: PLASMA CELL MYELOMA
     Dosage: 80 MG, 2X/WEEK
     Route: 048
     Dates: start: 20210524, end: 20210527
  9. METFORMIN [Concomitant]
     Active Substance: METFORMIN HYDROCHLORIDE
  10. RISPERIDONE. [Concomitant]
     Active Substance: RISPERIDONE
  11. CENTRUM SILVER +50 [Concomitant]
     Active Substance: MINERALS\VITAMINS
  12. BASAGLAR [Concomitant]
     Active Substance: INSULIN GLARGINE
  13. TRIAMCINOLONE [Concomitant]
     Active Substance: TRIAMCINOLONE
  14. LIPITOR [Concomitant]
     Active Substance: ATORVASTATIN CALCIUM
  15. JARDIANCE [Concomitant]
     Active Substance: EMPAGLIFLOZIN
  16. ATENOLOL. [Concomitant]
     Active Substance: ATENOLOL
  17. LANSOPRAZOLE. [Concomitant]
     Active Substance: LANSOPRAZOLE
  18. OXYBUTYNIN. [Concomitant]
     Active Substance: OXYBUTYNIN CHLORIDE
  19. ZOFRAN [Concomitant]
     Active Substance: ONDANSETRON HYDROCHLORIDE
  20. PERIDEX [CHLORHEXIDINE GLUCONATE] [Concomitant]

REACTIONS (4)
  - Confusional state [Recovering/Resolving]
  - Loss of therapeutic response [Unknown]
  - Nausea [Not Recovered/Not Resolved]
  - Vomiting [Recovering/Resolving]

NARRATIVE: CASE EVENT DATE: 20210527
